FAERS Safety Report 8836710 (Version 1)
Quarter: 2012Q4

REPORT INFORMATION
  Report Type: Spontaneous
  Country: US (occurrence: None)
  Receive Date: 20121010
  Receipt Date: 20121010
  Transmission Date: 20130627
  Serious: Yes (Hospitalization)
  Sender: FDA-Public Use
  Company Number: 2SU-2012-07077

PATIENT
  Age: 75 Year
  Sex: Male
  Weight: 92.99 kg

DRUGS (4)
  1. AZOR (OLMESARTAN MEDOXOMIL, AMLODIPINE BESILATE) (TABLET) (OLMESARTAN MEDOXOMIL, AMLODIPINE BESILATE) [Suspect]
     Indication: HYPERTENSION
     Route: 048
     Dates: start: 201202, end: 20120725
  2. BACTRIM DS [Suspect]
     Indication: BPH
     Dates: start: 20120701, end: 20120725
  3. ATENOLOL-CHLORTHALIDONE [Concomitant]
  4. DOXAZOSIN (DOXAZOSIN) (DOXAZOSIN) [Concomitant]

REACTIONS (5)
  - Blood potassium increased [None]
  - Prostatitis [None]
  - Benign prostatic hyperplasia [None]
  - Blood urea increased [None]
  - Blood creatinine increased [None]
